FAERS Safety Report 22214578 (Version 1)
Quarter: 2023Q2

REPORT INFORMATION
  Report Type: Spontaneous
  Country: GB (occurrence: GB)
  Receive Date: 20230415
  Receipt Date: 20230415
  Transmission Date: 20230722
  Serious: Yes (Death, Hospitalization, Other)
  Sender: FDA-Public Use
  Company Number: None

PATIENT
  Sex: Male
  Weight: 109 kg

DRUGS (4)
  1. ALLOPURINOL [Suspect]
     Active Substance: ALLOPURINOL
     Indication: Tumour lysis syndrome
  2. VENETOCLAX [Suspect]
     Active Substance: VENETOCLAX
     Indication: Chronic lymphocytic leukaemia
  3. FILGRASTIM [Concomitant]
     Active Substance: FILGRASTIM
  4. ACYCLOVIR [Concomitant]
     Active Substance: ACYCLOVIR

REACTIONS (6)
  - Toxic epidermal necrolysis [Fatal]
  - Oral pain [Unknown]
  - Pemphigus [Unknown]
  - Pemphigoid [Unknown]
  - Skin lesion [Unknown]
  - Multiple organ dysfunction syndrome [Unknown]
